FAERS Safety Report 25500820 (Version 2)
Quarter: 2025Q3

REPORT INFORMATION
  Report Type: Other
  Country: US (occurrence: US)
  Receive Date: 20250701
  Receipt Date: 20250708
  Transmission Date: 20251021
  Serious: No
  Sender: TRAVERE THERAPEUTICS
  Company Number: US-TRAVERE-2025TVT00861

PATIENT
  Age: 49 Year
  Sex: Male

DRUGS (1)
  1. FILSPARI [Suspect]
     Active Substance: SPARSENTAN
     Indication: IgA nephropathy
     Route: 048
     Dates: start: 20250523, end: 20250530

REACTIONS (8)
  - Abdominal pain upper [None]
  - Epistaxis [None]
  - Nasal congestion [None]
  - Dyspepsia [Unknown]
  - Pruritus [Unknown]
  - Abdominal discomfort [Unknown]
  - Gastrooesophageal reflux disease [Unknown]
  - Asthenia [Unknown]

NARRATIVE: CASE EVENT DATE: 20250523
